FAERS Safety Report 19566788 (Version 1)
Quarter: 2021Q3

REPORT INFORMATION
  Report Type: Spontaneous
  Country: FR (occurrence: FR)
  Receive Date: 20210714
  Receipt Date: 20210714
  Transmission Date: 20211014
  Serious: Yes (Other)
  Sender: FDA-Public Use
  Company Number: FR-MYLANLABS-2021M1041678

PATIENT
  Age: 68 Year
  Sex: Female
  Weight: 56 kg

DRUGS (1)
  1. GEMCITABINE. [Suspect]
     Active Substance: GEMCITABINE
     Indication: ADENOCARCINOMA PANCREAS
     Dosage: 500 MILLIGRAM/SQ. METER, TOTAL
     Route: 041
     Dates: start: 20201221

REACTIONS (1)
  - Hyperkalaemia [Recovered/Resolved]

NARRATIVE: CASE EVENT DATE: 20201230
